FAERS Safety Report 6427069-7 (Version None)
Quarter: 2009Q4

REPORT INFORMATION
  Report Type: 
  Country: None (occurrence: None)
  Receive Date: 20091026
  Receipt Date: 20090731
  Transmission Date: 20100525
  Serious: No
  Sender: FDA-Public Use
  Company Number: FPI-09-FIR-0167

PATIENT
  Age: 54 Year
  Sex: Male

DRUGS (4)
  1. FIRMAGON [Suspect]
     Indication: PROSTATE CANCER
     Dosage: 240MG (2 X 120MG INJ)
     Dates: start: 20090605
  2. ATENOLOL [Concomitant]
  3. DYAZIDE (HYDROCHLOROTHIAZIDE AND TRIAMTERENE) [Concomitant]
  4. CIALIS [Concomitant]

REACTIONS (2)
  - INJECTION SITE PAIN [None]
  - INJECTION SITE PRURITUS [None]
